FAERS Safety Report 14499809 (Version 1)
Quarter: 2018Q1

REPORT INFORMATION
  Report Type: Spontaneous
  Country: IE (occurrence: IE)
  Receive Date: 20180207
  Receipt Date: 20180207
  Transmission Date: 20180509
  Serious: Yes (Disabling)
  Sender: FDA-Public Use
  Company Number: IE-BAUSCH-BL-2018-003366

PATIENT
  Age: 60 Year
  Sex: Male
  Weight: 160 kg

DRUGS (1)
  1. GENTAMICIN. [Suspect]
     Active Substance: GENTAMICIN
     Indication: SEPSIS
     Dosage: ADJUSTED ACCORDING TO IDEAL BODY WEIGHT
     Route: 042

REACTIONS (1)
  - Deafness [Not Recovered/Not Resolved]
